FAERS Safety Report 7468004-2 (Version None)
Quarter: 2011Q2

REPORT INFORMATION
  Report Type: 
  Country: None (occurrence: None)
  Receive Date: 20110509
  Receipt Date: 20110502
  Transmission Date: 20111010
  Serious: Yes (Death, Other)
  Sender: FDA-Public Use
  Company Number: US-CELGENEUS-163-21880-11011756

PATIENT
  Sex: Female

DRUGS (4)
  1. REVLIMID [Suspect]
     Indication: MULTIPLE MYELOMA
     Route: 048
     Dates: start: 20060321, end: 20071118
  2. MELPHALAN [Suspect]
  3. THALOMID [Suspect]
     Route: 065
  4. DEXAMETHASONE [Suspect]
     Route: 065

REACTIONS (3)
  - COMPLICATIONS OF BONE MARROW TRANSPLANT [None]
  - ACUTE LYMPHOCYTIC LEUKAEMIA [None]
  - CARDIO-RESPIRATORY ARREST [None]
